FAERS Safety Report 10840779 (Version 1)
Quarter: 2015Q1

REPORT INFORMATION
  Report Type: Report from Study
  Country: US (occurrence: US)
  Receive Date: 20150220
  Receipt Date: 20150220
  Transmission Date: 20150721
  Serious: Yes (Hospitalization)
  Sender: FDA-Public Use
  Company Number: US-ABBVIE-14P-163-1251685-00

PATIENT
  Age: 47 Year
  Sex: Female

DRUGS (5)
  1. VITAMIN D [Concomitant]
     Active Substance: CHOLECALCIFEROL
     Indication: VITAMIN SUPPLEMENTATION
     Route: 048
  2. FLAGYL [Suspect]
     Active Substance: METRONIDAZOLE\METRONIDAZOLE HYDROCHLORIDE
     Indication: PRODUCT USED FOR UNKNOWN INDICATION
     Dates: start: 20140608
  3. OMEPRAZOLE. [Concomitant]
     Active Substance: OMEPRAZOLE
     Indication: GASTROOESOPHAGEAL REFLUX DISEASE
     Route: 048
  4. HUMIRA [Suspect]
     Active Substance: ADALIMUMAB
     Indication: CROHN^S DISEASE
     Dates: start: 20140516, end: 20140516
  5. HUMIRA [Suspect]
     Active Substance: ADALIMUMAB
     Dates: start: 20140530

REACTIONS (7)
  - Pancreatitis [Not Recovered/Not Resolved]
  - Nasopharyngitis [Unknown]
  - Paranasal sinus hypersecretion [Unknown]
  - Pyrexia [Unknown]
  - Sinus congestion [Unknown]
  - Diarrhoea [Unknown]
  - Haematemesis [Unknown]

NARRATIVE: CASE EVENT DATE: 201406
